FAERS Safety Report 21658527 (Version 1)
Quarter: 2022Q4

REPORT INFORMATION
  Report Type: Spontaneous
  Country: US (occurrence: None)
  Receive Date: 20221129
  Receipt Date: 20221129
  Transmission Date: 20230113
  Serious: Yes (Death)
  Sender: FDA-Public Use
  Company Number: None

PATIENT
  Age: 57 Year
  Sex: Female
  Weight: 70.9 kg

DRUGS (3)
  1. MIRCERA [Suspect]
     Active Substance: METHOXY POLYETHYLENE GLYCOL-EPOETIN BETA
     Indication: Anaemia
     Dosage: FREQUENCY : ONCE;?
     Route: 042
     Dates: start: 20221111, end: 20221111
  2. MIRCERA [Suspect]
     Active Substance: METHOXY POLYETHYLENE GLYCOL-EPOETIN BETA
     Indication: Chronic kidney disease
  3. CALCITRIOL [Concomitant]
     Active Substance: CALCITRIOL

REACTIONS (5)
  - Haemodialysis [None]
  - Unresponsive to stimuli [None]
  - Blood pressure increased [None]
  - Heart rate increased [None]
  - Respiration abnormal [None]

NARRATIVE: CASE EVENT DATE: 20221111
